FAERS Safety Report 14345377 (Version 1)
Quarter: 2018Q1

REPORT INFORMATION
  Report Type: Report from Study
  Country: US (occurrence: US)
  Receive Date: 20180103
  Receipt Date: 20180103
  Transmission Date: 20180509
  Serious: No
  Sender: FDA-Public Use
  Company Number: PHEH2017US042421

PATIENT
  Age: 88 Year
  Sex: Female

DRUGS (1)
  1. GLEEVEC [Suspect]
     Active Substance: IMATINIB MESYLATE
     Indication: WHITE BLOOD CELL COUNT DECREASED
     Dosage: 400 MG, QD
     Route: 048
     Dates: start: 20161202, end: 20171129

REACTIONS (2)
  - White blood cell count decreased [Unknown]
  - Product use in unapproved indication [Unknown]

NARRATIVE: CASE EVENT DATE: 20171129
